FAERS Safety Report 14138596 (Version 2)
Quarter: 2017Q4

REPORT INFORMATION
  Report Type: Spontaneous
  Country: FR (occurrence: FR)
  Receive Date: 20171027
  Receipt Date: 20171122
  Transmission Date: 20180321
  Serious: Yes (Hospitalization)
  Sender: FDA-Public Use
  Company Number: FR-BAYER-2017-201194

PATIENT
  Age: 47 Year
  Sex: Male

DRUGS (1)
  1. ASPIRINE PROTECT 100 MG [Suspect]
     Active Substance: ASPIRIN
     Indication: CORONARY ARTERIAL STENT INSERTION
     Dosage: 1 DF, QD
     Route: 048
     Dates: start: 20170621

REACTIONS (2)
  - Abdominal pain upper [None]
  - Gastric ulcer helicobacter [None]

NARRATIVE: CASE EVENT DATE: 201710
